FAERS Safety Report 8925411 (Version 1)
Quarter: 2012Q4

REPORT INFORMATION
  Report Type: Report from Study
  Country: GB (occurrence: GB)
  Receive Date: 20121126
  Receipt Date: 20121126
  Transmission Date: 20130627
  Serious: Yes (Death)
  Sender: FDA-Public Use
  Company Number: GB-ROCHE-1155515

PATIENT
  Sex: Male

DRUGS (4)
  1. RITUXIMAB [Suspect]
     Indication: RHEUMATOID ARTHRITIS
     Route: 065
     Dates: start: 20071113
  2. METHOTREXAT [Concomitant]
     Route: 065
     Dates: start: 20081103
  3. SULPHASALAZINE [Concomitant]
     Route: 065
     Dates: start: 20060627
  4. HYDROXYCHLOROQUINE [Concomitant]
     Route: 065
     Dates: start: 200407

REACTIONS (1)
  - Progressive multifocal leukoencephalopathy [Fatal]
